FAERS Safety Report 4584796-4 (Version None)
Quarter: 2005Q1

REPORT INFORMATION
  Report Type: 
  Country: None (occurrence: None)
  Receive Date: 20050217
  Receipt Date: 20050208
  Transmission Date: 20050727
  Serious: Yes (Other)
  Sender: FDA-Public Use
  Company Number: US-JNJFOC-20050103111

PATIENT
  Sex: Female
  Weight: 79.38 kg

DRUGS (8)
  1. REMICADE [Suspect]
     Route: 042
  2. REMICADE [Suspect]
     Route: 042
  3. REMICADE [Suspect]
     Route: 042
  4. REMICADE [Suspect]
     Indication: CROHN'S DISEASE
     Route: 042
  5. 6MP [Suspect]
     Indication: CROHN'S DISEASE
     Dosage: GREATER THAN 5 YEARS
     Route: 065
  6. LIPITOR [Concomitant]
     Dosage: GREATER THAN 2 YEARS
     Route: 065
  7. ACCUPRIL [Concomitant]
     Indication: HYPERTENSION
     Dosage: GREATER THAN 2 YEARS
     Route: 065
  8. NEXIUM [Concomitant]
     Dosage: GREATER THAN 2 YEARS
     Route: 065

REACTIONS (1)
  - CHRONIC MYELOID LEUKAEMIA [None]
